FAERS Safety Report 22352200 (Version 1)
Quarter: 2023Q2

REPORT INFORMATION
  Report Type: Spontaneous
  Country: TW (occurrence: TW)
  Receive Date: 20230522
  Receipt Date: 20230522
  Transmission Date: 20230721
  Serious: Yes (Hospitalization)
  Sender: FDA-Public Use
  Company Number: TW-BoehringerIngelheim-2023-BI-238361

PATIENT
  Age: 79 Year
  Sex: Male

DRUGS (13)
  1. EMPAGLIFLOZIN\METFORMIN HYDROCHLORIDE [Suspect]
     Active Substance: EMPAGLIFLOZIN\METFORMIN HYDROCHLORIDE
     Indication: Product used for unknown indication
     Dosage: 12.5/850 MG
  2. ACARBOSE [Suspect]
     Active Substance: ACARBOSE
     Indication: Product used for unknown indication
  3. TAMSULOSIN [Concomitant]
     Active Substance: TAMSULOSIN
     Dosage: 0.4MG HS
  4. ADARONE [Concomitant]
  5. NEBIVOLOL [Concomitant]
     Active Substance: NEBIVOLOL
  6. Amlos [Concomitant]
  7. VOSAA [Concomitant]
  8. XARELTO [Concomitant]
     Active Substance: RIVAROXABAN
  9. ROTY [Concomitant]
  10. XADOSIN [Concomitant]
     Dosage: 4MG HS
  11. MIRABEGRON [Concomitant]
     Active Substance: MIRABEGRON
     Dosage: 25MG HS
  12. MINIRIN [Concomitant]
     Active Substance: DESMOPRESSIN ACETATE
     Dosage: 0.1MG 0.5# HS
  13. THROUGH [Concomitant]
     Dosage: 40MG HS

REACTIONS (2)
  - Urinary tract infection [Recovered/Resolved]
  - Septic shock [Recovered/Resolved]

NARRATIVE: CASE EVENT DATE: 20230505
